FAERS Safety Report 9672413 (Version 1)
Quarter: 2013Q4

REPORT INFORMATION
  Report Type: Spontaneous
  Country: CA (occurrence: None)
  Receive Date: 20131105
  Receipt Date: 20131105
  Transmission Date: 20140711
  Serious: Yes (Hospitalization)
  Sender: FDA-Public Use
  Company Number: CA-013492

PATIENT
  Age: 80 Year
  Sex: Male

DRUGS (11)
  1. FIRMAGON [Suspect]
     Indication: PROSTATE CANCER
     Dates: start: 20110101
  2. APO-LEVOCARB [Concomitant]
  3. APO-SIMVASTATIN [Concomitant]
  4. TAMSULOSIN [Concomitant]
  5. CIPRALEX [Concomitant]
  6. ACETONEL [Concomitant]
  7. CALCIUM [Concomitant]
  8. COD LIVER OIL [Concomitant]
  9. GLUCOSAMINE SULFATE [Concomitant]
  10. ASA [Concomitant]
  11. VITAMIN B12/00056201 [Concomitant]

REACTIONS (2)
  - Syncope [None]
  - Malaise [None]
